FAERS Safety Report 9099031 (Version 1)
Quarter: 2013Q1

REPORT INFORMATION
  Report Type: Spontaneous
  Country: JP (occurrence: JP)
  Receive Date: 20130213
  Receipt Date: 20130213
  Transmission Date: 20140127
  Serious: Yes (Other)
  Sender: FDA-Public Use
  Company Number: JP-ASTELLAS-2013JP001343

PATIENT
  Age: 38 Year
  Sex: Female

DRUGS (13)
  1. PROGRAF [Suspect]
     Indication: RHEUMATOID ARTHRITIS
     Dosage: 1.5 MG, UID/QD
     Route: 048
  2. RHEUMATREX                         /00113801/ [Concomitant]
     Dosage: 12 MG, WEEKLY
     Route: 048
  3. BARACLUDE [Concomitant]
     Dosage: UNK
     Route: 048
  4. LOXONIN [Concomitant]
     Route: 065
  5. TAKEPRON [Concomitant]
     Dosage: UNK
     Route: 065
  6. TALION                             /01393102/ [Concomitant]
     Dosage: UNK
     Route: 048
  7. LYRICA [Concomitant]
     Dosage: 2 DF, UID/QD
     Route: 048
  8. LEUCOVORIN                         /00566702/ [Concomitant]
     Dosage: UNK
     Route: 065
  9. HYALURONATE SODIUM [Concomitant]
     Route: 065
  10. RINDERON A [Concomitant]
     Route: 065
  11. TIMOPTOL [Concomitant]
     Route: 047
  12. AZOPT [Concomitant]
     Route: 047
  13. PROTOPIC [Concomitant]
     Route: 061

REACTIONS (2)
  - Intentional drug misuse [Unknown]
  - Intraocular pressure increased [Unknown]
